FAERS Safety Report 9233261 (Version 1)
Quarter: 2013Q1

REPORT INFORMATION
  Report Type: Spontaneous
  Country: US (occurrence: None)
  Receive Date: 20121031
  Receipt Date: 20121031
  Transmission Date: 20140127
  Serious: No
  Sender: FDA-Public Use
  Company Number: PHEH2012US014205

PATIENT
  Sex: Female

DRUGS (7)
  1. GILENYA (FTY) CAPSULE, 0.5MG [Suspect]
     Route: 048
  2. LASIX (FUROSEMIDE) TABLET, 20MG [Concomitant]
  3. PROZAC (FLUOXETINE HYDROCHLORIDE) CAPSULE, 10MG [Concomitant]
  4. VALIUM (DIAZEPAM) TABLET, 2 MG [Concomitant]
  5. VITAMIN B12 (CYANCOBALMIN) TABLET [Concomitant]
  6. VITAMIN D (ERGOCALCIFEROL) TABLET [Concomitant]
  7. RED YEAST RICE CAPSULE [Concomitant]

REACTIONS (1)
  - Nausea [None]
